APPROVED DRUG PRODUCT: LORATADINE
Active Ingredient: LORATADINE
Strength: 5MG
Dosage Form/Route: TABLET, ORALLY DISINTEGRATING;ORAL
Application: A212795 | Product #001
Applicant: TENSHI KAIZEN PVT LTD
Approved: Sep 18, 2020 | RLD: No | RS: No | Type: OTC